FAERS Safety Report 10178604 (Version 1)
Quarter: 2014Q2

REPORT INFORMATION
  Report Type: Spontaneous
  Country: US (occurrence: None)
  Receive Date: 20140516
  Receipt Date: 20140516
  Transmission Date: 20141212
  Serious: No
  Sender: FDA-Public Use
  Company Number: None

PATIENT
  Age: 26 Year
  Sex: Female
  Weight: 50.8 kg

DRUGS (1)
  1. LORYNA [Suspect]
     Indication: DRUG THERAPY
     Dosage: 28, ONCE DAILY, TAKEN BY MOUTH
     Route: 048

REACTIONS (3)
  - Nausea [None]
  - Metrorrhagia [None]
  - Product substitution issue [None]
